FAERS Safety Report 21735930 (Version 3)
Quarter: 2023Q2

REPORT INFORMATION
  Report Type: Report from Study
  Country: CA (occurrence: CA)
  Receive Date: 20221215
  Receipt Date: 20230511
  Transmission Date: 20230721
  Serious: Yes (Death, Hospitalization, Other)
  Sender: FDA-Public Use
  Company Number: CA-HLS-202202121

PATIENT
  Age: 57 Year
  Sex: Female

DRUGS (1)
  1. CLOZARIL [Suspect]
     Active Substance: CLOZAPINE
     Indication: Product used for unknown indication
     Dosage: UNKNOWN
     Route: 048
     Dates: start: 20200814, end: 20221123

REACTIONS (3)
  - Neutropenia [Recovering/Resolving]
  - Death [Fatal]
  - Leukopenia [Recovering/Resolving]

NARRATIVE: CASE EVENT DATE: 20221123
